FAERS Safety Report 10084274 (Version 2)
Quarter: 2014Q2

REPORT INFORMATION
  Report Type: Spontaneous
  Country: CA (occurrence: CA)
  Receive Date: 20140417
  Receipt Date: 20140519
  Transmission Date: 20141212
  Serious: Yes (Death, Life-Threatening, Hospitalization)
  Sender: FDA-Public Use
  Company Number: CA-PFIZER INC-2014104171

PATIENT
  Age: 51 Year
  Sex: Female
  Weight: 57.8 kg

DRUGS (4)
  1. CRIZOTINIB [Suspect]
     Indication: NON-SMALL CELL LUNG CANCER
     Dosage: 250 MG, 2X/DAY
     Route: 048
     Dates: start: 201302, end: 201403
  2. PIP/TAZO [Concomitant]
     Indication: INFECTION
     Dosage: UNK
  3. GABAPENTIN [Concomitant]
     Indication: DYSAESTHESIA
  4. XARELTO [Concomitant]
     Indication: THROMBOSIS PROPHYLAXIS

REACTIONS (6)
  - Disease progression [Fatal]
  - Non-small cell lung cancer [Fatal]
  - Renal cyst [Unknown]
  - Renal failure acute [Unknown]
  - Posterior reversible encephalopathy syndrome [Unknown]
  - Fatigue [Unknown]
